FAERS Safety Report 9374699 (Version 1)
Quarter: 2013Q2

REPORT INFORMATION
  Report Type: Spontaneous
  Country: DE (occurrence: DE)
  Receive Date: 20130628
  Receipt Date: 20130628
  Transmission Date: 20140414
  Serious: Yes (Life-Threatening, Hospitalization, Other)
  Sender: FDA-Public Use
  Company Number: GXKR2013DE002208

PATIENT
  Sex: 0

DRUGS (4)
  1. ACETYLSALICYLIC ACID [Suspect]
     Indication: CORONARY ARTERY DISEASE
     Dosage: 100 MG, QD
     Route: 048
     Dates: start: 200909
  2. XARELTO [Suspect]
     Indication: ACUTE MYOCARDIAL INFARCTION
     Dosage: 15 MG, QD
     Route: 048
     Dates: start: 201302
  3. DIGITOXIN [Concomitant]
     Indication: ATRIAL FIBRILLATION
     Dosage: 0.07 MG, QD
     Route: 048
     Dates: start: 200909
  4. METOPROLOL [Concomitant]
     Indication: TACHYCARDIA
     Dosage: 47.5 MG, BID
     Route: 048
     Dates: start: 200909

REACTIONS (1)
  - Gastrointestinal haemorrhage [Not Recovered/Not Resolved]
